FAERS Safety Report 22268804 (Version 1)
Quarter: 2023Q2

REPORT INFORMATION
  Report Type: Spontaneous
  Country: CA (occurrence: CA)
  Receive Date: 20230501
  Receipt Date: 20230501
  Transmission Date: 20230722
  Serious: Yes (Other)
  Sender: FDA-Public Use
  Company Number: CA-002147023-NVSC2023CA093918

PATIENT
  Age: 8 Year
  Sex: Male

DRUGS (1)
  1. CLARITHROMYCIN [Suspect]
     Active Substance: CLARITHROMYCIN
     Indication: Pneumonia
     Dosage: 2 DOSAGE FORM, QD
     Route: 048

REACTIONS (3)
  - Drug withdrawal headache [Unknown]
  - Feeling hot [Unknown]
  - Diarrhoea [Unknown]
